FAERS Safety Report 7918815-1 (Version None)
Quarter: 2011Q4

REPORT INFORMATION
  Report Type: 
  Country: None (occurrence: None)
  Receive Date: 20111116
  Receipt Date: 20111111
  Transmission Date: 20120403
  Serious: Yes (Other)
  Sender: FDA-Public Use
  Company Number: US-ABBOTT-11P-163-0727756-00

PATIENT
  Sex: Female
  Weight: 69.462 kg

DRUGS (1)
  1. LUPRON DEPOT [Suspect]
     Indication: ENDOMETRIOSIS
     Route: 050
     Dates: start: 20101018, end: 20110225

REACTIONS (2)
  - DRUG INEFFECTIVE [None]
  - PAIN [None]
